FAERS Safety Report 12348843 (Version 1)
Quarter: 2016Q2

REPORT INFORMATION
  Report Type: Report from Study
  Country: US (occurrence: US)
  Receive Date: 20160509
  Receipt Date: 20160509
  Transmission Date: 20160815
  Serious: Yes (Hospitalization)
  Sender: FDA-Public Use
  Company Number: US-GILEAD-2016-0212419

PATIENT
  Age: 57 Year
  Sex: Male

DRUGS (2)
  1. SOFOSBUVIR [Suspect]
     Active Substance: SOFOSBUVIR
     Indication: CHRONIC HEPATITIS C
     Dosage: 400 MG, UNK
     Route: 048
     Dates: start: 20160309
  2. RIBAVIRIN. [Concomitant]
     Active Substance: RIBAVIRIN
     Indication: CHRONIC HEPATITIS C
     Dosage: UNK
     Route: 065
     Dates: start: 20160309

REACTIONS (8)
  - Asthenia [Unknown]
  - Off label use [Unknown]
  - Sleep disorder [Unknown]
  - Depression [Unknown]
  - Pain [Unknown]
  - Ammonia increased [Unknown]
  - Cough [Unknown]
  - Lethargy [Unknown]
